FAERS Safety Report 13227483 (Version 1)
Quarter: 2017Q1

REPORT INFORMATION
  Report Type: Spontaneous
  Country: HR (occurrence: HR)
  Receive Date: 20170213
  Receipt Date: 20170213
  Transmission Date: 20170428
  Serious: Yes (Other)
  Sender: FDA-Public Use
  Company Number: HR-ELI_LILLY_AND_COMPANY-HR201702001316

PATIENT
  Sex: Female

DRUGS (6)
  1. CLOPIXOL                           /00876702/ [Suspect]
     Active Substance: ZUCLOPENTHIXOL ACETATE
     Indication: PSYCHOTIC DISORDER
     Dosage: 20 MG, QD
     Route: 065
     Dates: start: 2016, end: 2016
  2. AZOLAR [Suspect]
     Active Substance: ARIPIPRAZOLE
     Indication: PSYCHOTIC DISORDER
     Dosage: 20 MG, UNKNOWN
     Route: 048
     Dates: start: 2016, end: 2016
  3. ACIPAN [Concomitant]
     Active Substance: PANTOPRAZOLE SODIUM
  4. NORMABEL [Concomitant]
     Active Substance: DIAZEPAM
  5. METOPRAN [Concomitant]
  6. OLANZAPINE. [Suspect]
     Active Substance: OLANZAPINE
     Indication: PSYCHOTIC DISORDER
     Dosage: 10 MG, QD
     Route: 048
     Dates: start: 2016, end: 2016

REACTIONS (1)
  - Leukopenia [Recovering/Resolving]

NARRATIVE: CASE EVENT DATE: 2016
